FAERS Safety Report 6903923-4 (Version None)
Quarter: 2010Q3

REPORT INFORMATION
  Report Type: 
  Country: None (occurrence: None)
  Receive Date: 20100804
  Receipt Date: 20090126
  Transmission Date: 20110219
  Serious: No
  Sender: FDA-Public Use
  Company Number: US-PFIZER INC-2008101576

PATIENT
  Sex: Female
  Weight: 63.946 kg

DRUGS (4)
  1. LYRICA [Suspect]
     Indication: NEUROPATHY PERIPHERAL
     Dosage: 50 MG, 2X/DAY
     Route: 048
     Dates: start: 20081103, end: 20081201
  2. SPIRIVA [Concomitant]
  3. VALSARTAN [Concomitant]
  4. HYDROCHLOROTHIAZIDE [Concomitant]

REACTIONS (2)
  - ABNORMAL DREAMS [None]
  - INTENTIONAL DRUG MISUSE [None]
